FAERS Safety Report 9507529 (Version 2)
Quarter: 2013Q4

REPORT INFORMATION
  Report Type: Spontaneous
  Country: US (occurrence: US)
  Receive Date: 20130909
  Receipt Date: 20131014
  Transmission Date: 20140711
  Serious: Yes (Death, Life-Threatening, Hospitalization, Other)
  Sender: FDA-Public Use
  Company Number: US-ASTELLAS-2013US009466

PATIENT
  Age: 76 Year
  Sex: Female

DRUGS (25)
  1. LEXISCAN [Suspect]
     Indication: SCAN MYOCARDIAL PERFUSION
     Dosage: 0.08 MG/ML, TOTAL DOSE
     Route: 042
     Dates: start: 20130831
  2. LEXISCAN [Suspect]
     Indication: ATRIAL FIBRILLATION
  3. LEXISCAN [Suspect]
     Indication: CHEST PAIN
  4. CYANOCOBALAMIN [Concomitant]
     Indication: PRODUCT USED FOR UNKNOWN INDICATION
     Dosage: 1000 UG/ML, MONTHLY
     Route: 030
  5. PREMARIN [Concomitant]
     Indication: PRODUCT USED FOR UNKNOWN INDICATION
     Dosage: 0.5 G, TWICE A WEEK
     Route: 067
  6. BENEFIBER                          /00677201/ [Concomitant]
     Indication: PRODUCT USED FOR UNKNOWN INDICATION
     Dosage: UNK
     Route: 065
  7. NEXIUM                             /01479302/ [Concomitant]
     Indication: PRODUCT USED FOR UNKNOWN INDICATION
     Dosage: 40 MG, UID/QD
     Route: 048
  8. CARDIZEM CD [Concomitant]
     Indication: PRODUCT USED FOR UNKNOWN INDICATION
     Dosage: 180 MG, UID/QD
     Route: 048
  9. CEPHALEXIN                         /00145501/ [Concomitant]
     Indication: PRODUCT USED FOR UNKNOWN INDICATION
     Dosage: 250 MG, Q6 HOURS
     Route: 048
  10. POTASSIUM CHLORIDE ER [Concomitant]
     Indication: PRODUCT USED FOR UNKNOWN INDICATION
     Dosage: 10 MEQ, UID/QD
     Route: 048
  11. SOTALOL AF                         /00371501/ [Concomitant]
     Indication: PRODUCT USED FOR UNKNOWN INDICATION
     Dosage: 160 MG, Q12 HOURS
     Route: 048
  12. LORTAB                             /00607101/ [Concomitant]
     Indication: PRODUCT USED FOR UNKNOWN INDICATION
     Dosage: 1 DF, Q6 HOURS
     Route: 048
  13. MACROBID                           /00024401/ [Concomitant]
     Indication: PRODUCT USED FOR UNKNOWN INDICATION
     Dosage: 100 MG, Q12 HOURS
     Route: 048
  14. CEFPODOXIME [Concomitant]
     Indication: PRODUCT USED FOR UNKNOWN INDICATION
     Dosage: 100 MG, BID
     Route: 048
  15. KEFLEX                             /00145501/ [Concomitant]
     Indication: PRODUCT USED FOR UNKNOWN INDICATION
     Dosage: 500 MG, BID
     Route: 048
  16. ALDACTONE                          /00006201/ [Concomitant]
     Indication: PRODUCT USED FOR UNKNOWN INDICATION
     Dosage: 25 MG, UID/QD
     Route: 048
  17. ASPIRIN [Concomitant]
     Indication: PRODUCT USED FOR UNKNOWN INDICATION
     Dosage: 325 MG, UID/QD
     Route: 048
  18. CALCIUM [Concomitant]
     Indication: PRODUCT USED FOR UNKNOWN INDICATION
     Dosage: 500 MG, TID
     Route: 048
  19. MILK OF MAGNESIUM [Concomitant]
     Indication: CONSTIPATION
     Dosage: 30 CC, UNK
     Route: 048
  20. LASIX                              /00032601/ [Concomitant]
     Indication: PRODUCT USED FOR UNKNOWN INDICATION
     Dosage: 20 MG, UID/QD
     Route: 048
  21. GLUCOSAMINE + CHONDROITIN          /01625901/ [Concomitant]
     Indication: PRODUCT USED FOR UNKNOWN INDICATION
     Dosage: 1 DF, BID
     Route: 048
  22. LISINOPRIL [Concomitant]
     Indication: PRODUCT USED FOR UNKNOWN INDICATION
     Dosage: 10 MG, UID/QD
     Route: 048
  23. MEVACOR [Concomitant]
     Indication: PRODUCT USED FOR UNKNOWN INDICATION
     Dosage: 40 MG, UID/QD
     Route: 048
  24. MAGNESIUM W/ZINC [Concomitant]
     Indication: PRODUCT USED FOR UNKNOWN INDICATION
     Dosage: 3 DF, UID/QD
     Route: 048
  25. ACETYLSALICYLIC ACID W/CAFFEINE/ORPHENADRINE [Concomitant]
     Indication: HEADACHE
     Dosage: 1 DF, UID/QD

REACTIONS (9)
  - Retroperitoneal haemorrhage [Fatal]
  - Atrial fibrillation [Unknown]
  - Renal failure acute [Unknown]
  - Pulseless electrical activity [Unknown]
  - Pulmonary embolism [Unknown]
  - Aspartate aminotransferase increased [Unknown]
  - Alanine aminotransferase increased [Unknown]
  - Hypotension [Unknown]
  - Atrioventricular block [Unknown]
